FAERS Safety Report 21601649 (Version 1)
Quarter: 2022Q4

REPORT INFORMATION
  Report Type: Spontaneous
  Country: FR (occurrence: FR)
  Receive Date: 20221116
  Receipt Date: 20221116
  Transmission Date: 20230112
  Serious: Yes (Life-Threatening, Hospitalization)
  Sender: FDA-Public Use
  Company Number: None

PATIENT
  Age: 68 Year
  Sex: Male

DRUGS (6)
  1. SERTRALINE [Suspect]
     Active Substance: SERTRALINE HYDROCHLORIDE
     Indication: Product used for unknown indication
     Dosage: 6 TABLETS OF 25MG
     Dates: start: 20220816, end: 20220816
  2. OLANZAPINE [Suspect]
     Active Substance: OLANZAPINE
     Indication: Product used for unknown indication
     Dosage: 14 TABLETS OF 10MG
     Dates: start: 20220816, end: 20220816
  3. ALPRAZOLAM [Suspect]
     Active Substance: ALPRAZOLAM
     Indication: Product used for unknown indication
     Dosage: 19 TABLETS OF 0.25MG
     Dates: start: 20220816, end: 20220816
  4. CLOMIPRAMINE HYDROCHLORIDE [Suspect]
     Active Substance: CLOMIPRAMINE HYDROCHLORIDE
     Indication: Product used for unknown indication
     Dosage: 20 TABLETS OF 75MG
     Dates: start: 20220816, end: 20220816
  5. PROTHIADEN [Suspect]
     Active Substance: DOTHIEPIN HYDROCHLORIDE
     Indication: Product used for unknown indication
     Dosage: STRENGTH: 75 MG, 30 TABLETS OF 75MG
     Dates: start: 20220816, end: 20220816
  6. ZOPICLONE [Suspect]
     Active Substance: ZOPICLONE
     Indication: Product used for unknown indication
     Dosage: 13 TABLETS OF 7.5MG
     Dates: start: 20220816, end: 20220816

REACTIONS (4)
  - Psychiatric symptom [Recovered/Resolved]
  - Bezoar [Recovered/Resolved]
  - Coma [Recovered/Resolved]
  - Electrocardiogram QT prolonged [Recovered/Resolved]

NARRATIVE: CASE EVENT DATE: 20220816
